FAERS Safety Report 6913216-7 (Version None)
Quarter: 2010Q3

REPORT INFORMATION
  Report Type: 
  Country: None (occurrence: None)
  Receive Date: 20100809
  Receipt Date: 20100803
  Transmission Date: 20110219
  Serious: Yes (Other)
  Sender: FDA-Public Use
  Company Number: US-ASTRAZENECA-2007UW25293

PATIENT
  Age: 666 Month
  Sex: Male
  Weight: 94.3 kg

DRUGS (22)
  1. SEROQUEL [Suspect]
     Indication: DEPRESSION
     Dosage: 25MG-200 MG
     Route: 048
     Dates: start: 20020909
  2. SEROQUEL [Suspect]
     Indication: INSOMNIA
     Dosage: 25MG-200 MG
     Route: 048
     Dates: start: 20020909
  3. SEROQUEL [Suspect]
     Indication: SLEEP DISORDER
     Dosage: 25MG-200 MG
     Route: 048
     Dates: start: 20020909
  4. SEROQUEL [Suspect]
     Dosage: 25 MG - 200 MG
     Route: 048
     Dates: start: 20021107, end: 20060201
  5. SEROQUEL [Suspect]
     Dosage: 25 MG - 200 MG
     Route: 048
     Dates: start: 20021107, end: 20060201
  6. SEROQUEL [Suspect]
     Dosage: 25 MG - 200 MG
     Route: 048
     Dates: start: 20021107, end: 20060201
  7. RISPERDAL [Concomitant]
     Indication: DEPRESSION
     Route: 048
     Dates: start: 20041101, end: 20051207
  8. RISPERDAL [Concomitant]
     Dosage: 1MG-4MG
     Route: 048
  9. THORAZINE [Concomitant]
     Indication: PARANOIA
     Dates: start: 19950101, end: 19990101
  10. THORAZINE [Concomitant]
     Dosage: 50 MG-100 MG AT NIGHT AS REQUIRED
     Route: 048
  11. PAROXETINE HCL [Concomitant]
     Indication: DEPRESSION
     Dosage: STRENGTH-20 MG, 40 MG. DOSE-20, 60 MG DAILY
     Route: 048
  12. GABAPENTIN [Concomitant]
     Indication: CONVULSION
     Dosage: STRENGTH 600 MG-2700 MG
     Route: 048
  13. GABAPENTIN [Concomitant]
     Indication: NEURALGIA
     Dosage: STRENGTH 600 MG-2700 MG
     Route: 048
  14. GABAPENTIN [Concomitant]
     Indication: PANIC DISORDER
     Dosage: STRENGTH 600 MG-2700 MG
     Route: 048
  15. GABAPENTIN [Concomitant]
  16. GABAPENTIN [Concomitant]
  17. GABAPENTIN [Concomitant]
  18. NICOTINE [Concomitant]
     Indication: SMOKING CESSATION THERAPY
     Route: 061
  19. OMEPRAZOLE [Concomitant]
     Indication: DYSPEPSIA
  20. PROTONIX [Concomitant]
     Indication: GASTROOESOPHAGEAL REFLUX DISEASE
     Route: 048
  21. GLIPIZIDE [Concomitant]
     Indication: DIABETES MELLITUS
     Route: 048
  22. THIAMINE HYDROCHLORIDE [Concomitant]
     Indication: VITAMIN B1 DEFICIENCY
     Route: 048

REACTIONS (15)
  - BACK PAIN [None]
  - BARRETT'S OESOPHAGUS [None]
  - BIOPSY LIVER [None]
  - BLOOD GLUCOSE INCREASED [None]
  - BURNS SECOND DEGREE [None]
  - CARPAL TUNNEL SYNDROME [None]
  - HYPERGLYCAEMIA [None]
  - LUNG DISORDER [None]
  - LUNG NEOPLASM MALIGNANT [None]
  - OESOPHAGOGASTRODUODENOSCOPY [None]
  - PARAESTHESIA [None]
  - PNEUMONIA [None]
  - SLEEP APNOEA SYNDROME [None]
  - TYPE 2 DIABETES MELLITUS [None]
  - UPPER EXTREMITY MASS [None]
